FAERS Safety Report 20823751 (Version 1)
Quarter: 2022Q2

REPORT INFORMATION
  Report Type: Spontaneous
  Country: US (occurrence: US)
  Receive Date: 20220513
  Receipt Date: 20220513
  Transmission Date: 20220721
  Serious: No
  Sender: FDA-Public Use
  Company Number: US-TEVA-2021-US-1990753

PATIENT
  Age: 76 Year
  Sex: Female

DRUGS (1)
  1. AJOVY [Suspect]
     Active Substance: FREMANEZUMAB-VFRM
     Dosage: STRENGTH: 225 MG / 1.5 ML
     Route: 065
     Dates: start: 202111

REACTIONS (13)
  - Device difficult to use [Unknown]
  - Wrong technique in device usage process [Unknown]
  - Incorrect dose administered by device [Unknown]
  - Fatigue [Unknown]
  - Constipation [Unknown]
  - Skin disorder [Unknown]
  - Device delivery system issue [Unknown]
  - Adverse event [Unknown]
  - Trichorrhexis [Unknown]
  - Pruritus [Unknown]
  - Rash [Unknown]
  - Skin discomfort [Unknown]
  - Injection site pain [Unknown]

NARRATIVE: CASE EVENT DATE: 20210101
